FAERS Safety Report 21534083 (Version 1)
Quarter: 2022Q4

REPORT INFORMATION
  Report Type: Spontaneous
  Country: US (occurrence: US)
  Receive Date: 20221101
  Receipt Date: 20221101
  Transmission Date: 20230112
  Serious: No
  Sender: FDA-Public Use
  Company Number: US-PARATEK PHARMACEUTICALS, INC.-2022PTK00267

PATIENT
  Sex: Male
  Weight: 75.283 kg

DRUGS (5)
  1. NUZYRA [Suspect]
     Active Substance: OMADACYCLINE
     Indication: Wound infection
     Dosage: 300 MG, 1X/DAY
     Route: 048
     Dates: start: 202207, end: 202208
  2. NUZYRA [Suspect]
     Active Substance: OMADACYCLINE
     Indication: Abscess limb
  3. METFORMIN [Concomitant]
     Active Substance: METFORMIN HYDROCHLORIDE
  4. METOPROLOL [Concomitant]
     Active Substance: METOPROLOL
  5. LANTUS [Concomitant]
     Active Substance: INSULIN GLARGINE

REACTIONS (3)
  - Drug ineffective [Recovered/Resolved]
  - Wound secretion [Recovering/Resolving]
  - Incorrect product administration duration [Recovered/Resolved]

NARRATIVE: CASE EVENT DATE: 20220101
